FAERS Safety Report 12460422 (Version 2)
Quarter: 2016Q3

REPORT INFORMATION
  Report Type: Spontaneous
  Country: US (occurrence: US)
  Receive Date: 20160613
  Receipt Date: 20160810
  Transmission Date: 20161109
  Serious: Yes (Hospitalization, Other)
  Sender: FDA-Public Use
  Company Number: US-JNJFOC-20160601670

PATIENT
  Sex: Female

DRUGS (1)
  1. REMICADE [Suspect]
     Active Substance: INFLIXIMAB
     Indication: ANKYLOSING SPONDYLITIS
     Route: 042
     Dates: start: 200602

REACTIONS (9)
  - Arthralgia [Recovering/Resolving]
  - Therapeutic response decreased [Not Recovered/Not Resolved]
  - Joint effusion [Recovered/Resolved]
  - Urinary tract infection [Recovered/Resolved]
  - Body height decreased [Unknown]
  - Blood pressure increased [Unknown]
  - Spinal fusion acquired [Unknown]
  - Hypoaesthesia [Unknown]
  - Corrective lens user [Unknown]

NARRATIVE: CASE EVENT DATE: 2012
